FAERS Safety Report 4865399-0 (Version None)
Quarter: 2005Q4

REPORT INFORMATION
  Report Type: 
  Country: None (occurrence: None)
  Receive Date: 20051219
  Receipt Date: 20051209
  Transmission Date: 20060501
  Serious: Yes (Life-Threatening, Hospitalization)
  Sender: FDA-Public Use
  Company Number: 2005AP000993

PATIENT
  Age: 60 Year
  Sex: Male

DRUGS (3)
  1. RANITIDINE HYDROCHLORIDE [Suspect]
     Route: 048
  2. LISINOPRIL [Suspect]
  3. ASPIRIN [Suspect]

REACTIONS (11)
  - ACUTE MYOCARDIAL INFARCTION [None]
  - AGITATION [None]
  - ANAPHYLACTIC REACTION [None]
  - ANGIONEUROTIC OEDEMA [None]
  - CYANOSIS CENTRAL [None]
  - EMPHYSEMA [None]
  - HAEMORRHAGE [None]
  - OXYGEN SATURATION DECREASED [None]
  - PNEUMOPERICARDIUM [None]
  - PNEUMOTHORAX [None]
  - RESPIRATORY DISTRESS [None]
